FAERS Safety Report 6928936-8 (Version None)
Quarter: 2010Q3

REPORT INFORMATION
  Report Type: 
  Country: None (occurrence: None)
  Receive Date: 20100812
  Receipt Date: 20100729
  Transmission Date: 20110219
  Serious: Yes (Other)
  Sender: FDA-Public Use
  Company Number: CAP10000024

PATIENT
  Age: 68 Year
  Sex: Female

DRUGS (2)
  1. ACTONEL [Suspect]
     Indication: OSTEOPOROSIS
     Dosage: 35 MG ONCE WEEKLY, ORAL
     Route: 048
     Dates: start: 20040101, end: 20090601
  2. LEVOTHYROXINE SODIUM [Concomitant]

REACTIONS (3)
  - CARDIOVASCULAR DISORDER [None]
  - HEARING IMPAIRED [None]
  - JAW DISORDER [None]
